FAERS Safety Report 13012757 (Version 1)
Quarter: 2016Q4

REPORT INFORMATION
  Report Type: Spontaneous
  Country: US (occurrence: US)
  Receive Date: 20161208
  Receipt Date: 20161208
  Transmission Date: 20170207
  Serious: Yes (Other)
  Sender: FDA-Public Use
  Company Number: None

PATIENT
  Age: 85 Year
  Sex: Female
  Weight: 69.46 kg

DRUGS (7)
  1. COQ10 [Concomitant]
     Active Substance: UBIDECARENONE
  2. CLONIDINE. [Concomitant]
     Active Substance: CLONIDINE
  3. XANAX [Concomitant]
     Active Substance: ALPRAZOLAM
  4. CRESTOR [Suspect]
     Active Substance: ROSUVASTATIN CALCIUM
  5. BRILINTA [Concomitant]
     Active Substance: TICAGRELOR
  6. LABETALOL [Concomitant]
     Active Substance: LABETALOL\LABETALOL HYDROCHLORIDE
  7. VITAMIN D [Concomitant]
     Active Substance: CHOLECALCIFEROL

REACTIONS (4)
  - Myopathy [None]
  - Muscle spasms [None]
  - Abdominal pain upper [None]
  - Tendon disorder [None]

NARRATIVE: CASE EVENT DATE: 20161111
